FAERS Safety Report 21187844 (Version 3)
Quarter: 2022Q3

REPORT INFORMATION
  Report Type: Spontaneous
  Country: ES (occurrence: ES)
  Receive Date: 20220809
  Receipt Date: 20220824
  Transmission Date: 20221026
  Serious: Yes (Other)
  Sender: FDA-Public Use
  Company Number: ES-AstraZeneca-2022A250260

PATIENT
  Age: 47 Year
  Sex: Female

DRUGS (3)
  1. OMEPRAZOLE [Suspect]
     Active Substance: OMEPRAZOLE
     Indication: Tooth abscess
     Dosage: 40 MILLIGRAM, ONCE A DAY (ONE CAPSULE A DAY)
     Route: 048
  2. METAMIZOLE [Concomitant]
     Active Substance: METAMIZOLE
     Indication: Tooth abscess
     Dosage: 575 MILLIGRAM, 3 TIMES A DAY (ONE CAPSULE EVERY EIGHT HOURS)
     Route: 048
  3. METRONIDAZOLE [Concomitant]
     Active Substance: METRONIDAZOLE
     Indication: Tooth abscess
     Dosage: 2 DOSAGE FORM, 3 TIMES A DAY (125 MG, TWO TABLETS EVERY EIGHT HOURS)
     Route: 048

REACTIONS (8)
  - Anaphylactic reaction [Unknown]
  - Aphonia [Unknown]
  - Oedema peripheral [Unknown]
  - Pruritus [Unknown]
  - Erythema [Unknown]
  - Angioedema [Unknown]
  - Pharyngeal oedema [Unknown]
  - Product use in unapproved indication [Unknown]
